FAERS Safety Report 6055718-4 (Version None)
Quarter: 2009Q1

REPORT INFORMATION
  Report Type: 
  Country: None (occurrence: None)
  Receive Date: 20090128
  Receipt Date: 20090120
  Transmission Date: 20090719
  Serious: Yes (Disabling)
  Sender: FDA-Public Use
  Company Number: GB-AVENTIS-200821753GDDC

PATIENT
  Age: 52 Year
  Sex: Female
  Weight: 70 kg

DRUGS (6)
  1. LEFLUNOMIDE [Suspect]
     Dates: end: 20081101
  2. HUMIRA [Suspect]
     Indication: PSORIASIS
     Route: 058
     Dates: start: 20080401
  3. IBUPROFEN TABLETS [Concomitant]
     Dosage: DOSE: 8 DOSE FORMS
  4. LANSOPRAZOLE [Concomitant]
  5. RAMIPRIL [Concomitant]
     Dosage: DOSE: UNK
  6. TRAMADOL HCL [Concomitant]
     Dosage: DOSE: UNK

REACTIONS (2)
  - EMOTIONAL DISTRESS [None]
  - ERYTHEMA MULTIFORME [None]
